FAERS Safety Report 10883628 (Version 2)
Quarter: 2015Q1

REPORT INFORMATION
  Report Type: Spontaneous
  Country: AR (occurrence: AR)
  Receive Date: 20150303
  Receipt Date: 20150316
  Transmission Date: 20150721
  Serious: Yes (Other)
  Sender: FDA-Public Use
  Company Number: AR-GILEAD-2015-0140060

PATIENT
  Sex: Female

DRUGS (6)
  1. ILOPROST [Concomitant]
     Active Substance: ILOPROST
     Indication: PULMONARY HYPERTENSION
     Dosage: UNK
  2. LAMOTRIGINE. [Concomitant]
     Active Substance: LAMOTRIGINE
     Dosage: 100 MG, QD
  3. RAPAMUNE [Concomitant]
     Active Substance: SIROLIMUS
     Dosage: 2 MG, QD
  4. AMBRISENTAN [Suspect]
     Active Substance: AMBRISENTAN
     Indication: PULMONARY HYPERTENSION
     Dosage: UNK
     Route: 065
     Dates: start: 201412
  5. ACETAMINOPHEN AND CODEINE [Concomitant]
     Active Substance: ACETAMINOPHEN\CODEINE PHOSPHATE
     Dosage: 60/300 MG, UNK
  6. SUMATRIPTAN. [Concomitant]
     Active Substance: SUMATRIPTAN
     Dosage: 100 MG, QD

REACTIONS (6)
  - Decreased appetite [Unknown]
  - Hepatic enzyme abnormal [Unknown]
  - Vomiting [Unknown]
  - Autoimmune hepatitis [Unknown]
  - Nausea [Unknown]
  - Abdominal pain upper [Unknown]
